FAERS Safety Report 10346847 (Version 2)
Quarter: 2014Q3

REPORT INFORMATION
  Report Type: Spontaneous
  Country: IT (occurrence: IT)
  Receive Date: 20140729
  Receipt Date: 20140804
  Transmission Date: 20150326
  Serious: Yes (Life-Threatening, Other)
  Sender: FDA-Public Use
  Company Number: IT-ROCHE-1438885

PATIENT
  Age: 68 Year
  Sex: Female
  Weight: 140 kg

DRUGS (2)
  1. AVASTIN [Suspect]
     Active Substance: BEVACIZUMAB
     Indication: BREAST CANCER METASTATIC
     Dosage: 400 MG, 100 MG
     Route: 042
     Dates: start: 20140516, end: 20140613
  2. PACLITAXEL. [Suspect]
     Active Substance: PACLITAXEL
     Indication: BREAST CANCER METASTATIC
     Route: 042
     Dates: start: 20140516, end: 20140613

REACTIONS (5)
  - Renal failure acute [Unknown]
  - Cyanosis [Recovering/Resolving]
  - Humerus fracture [Unknown]
  - Hepatic failure [Unknown]
  - Loss of consciousness [Recovering/Resolving]

NARRATIVE: CASE EVENT DATE: 20140613
